FAERS Safety Report 22144736 (Version 2)
Quarter: 2023Q2

REPORT INFORMATION
  Report Type: Spontaneous
  Country: JP (occurrence: JP)
  Receive Date: 20230328
  Receipt Date: 20230411
  Transmission Date: 20230722
  Serious: Yes (Death, Other)
  Sender: FDA-Public Use
  Company Number: JP-KYOWAKIRIN-2023AKK004050

PATIENT
  Sex: Male

DRUGS (2)
  1. PEGFILGRASTIM [Suspect]
     Active Substance: PEGFILGRASTIM
     Indication: Product used for unknown indication
     Dosage: UNK
     Route: 058
  2. AMRUBICIN HYDROCHLORIDE [Suspect]
     Active Substance: AMRUBICIN HYDROCHLORIDE
     Indication: Small cell lung cancer
     Dosage: UNK
     Route: 065

REACTIONS (2)
  - Death [Fatal]
  - Febrile neutropenia [Fatal]
